FAERS Safety Report 9055361 (Version 4)
Quarter: 2014Q1

REPORT INFORMATION
  Report Type: Report from Study
  Country: BR (occurrence: BR)
  Receive Date: 20130206
  Receipt Date: 20140204
  Transmission Date: 20141002
  Serious: Yes (Disabling, Other)
  Sender: FDA-Public Use
  Company Number: BR-ROCHE-1083009

PATIENT
  Sex: Male
  Weight: 58 kg

DRUGS (6)
  1. ACTEMRA [Suspect]
     Indication: RHEUMATOID ARTHRITIS
     Route: 042
     Dates: start: 20111119, end: 201308
  2. ACTEMRA [Suspect]
     Route: 065
     Dates: start: 201208, end: 20130110
  3. TORLOS [Concomitant]
     Route: 065
  4. RIVOTRIL [Concomitant]
     Route: 065
  5. PROLOPA [Concomitant]
     Dosage: 200/50 MG
     Route: 065
  6. TRAMADOL [Concomitant]
     Route: 065

REACTIONS (6)
  - Abasia [Not Recovered/Not Resolved]
  - Drug ineffective [Unknown]
  - Pain [Recovered/Resolved]
  - Eye irritation [Not Recovered/Not Resolved]
  - Pruritus [Not Recovered/Not Resolved]
  - Joint swelling [Not Recovered/Not Resolved]
